FAERS Safety Report 19656506 (Version 1)
Quarter: 2021Q3

REPORT INFORMATION
  Report Type: Spontaneous
  Country: DE (occurrence: DE)
  Receive Date: 20210804
  Receipt Date: 20210804
  Transmission Date: 20211014
  Serious: Yes (Other)
  Sender: FDA-Public Use
  Company Number: DE-SA-2021SA252880

PATIENT
  Age: 75 Year
  Sex: Female
  Weight: 55 kg

DRUGS (4)
  1. BISOPROLOL [Concomitant]
     Active Substance: BISOPROLOL
     Indication: HYPERTENSION
     Dosage: 5 MG
     Route: 048
     Dates: start: 2015
  2. PANZYTRATE [Concomitant]
     Indication: PANCREATIC FAILURE
     Dosage: 75000 IU, QD
     Route: 048
     Dates: start: 2015
  3. LANTUS [Suspect]
     Active Substance: INSULIN GLARGINE
     Indication: TYPE 2 DIABETES MELLITUS
     Route: 058
     Dates: start: 20191114
  4. HCT [Concomitant]
     Active Substance: HYDROCHLOROTHIAZIDE
     Indication: HYPERTENSION
     Route: 048
     Dates: start: 2015

REACTIONS (4)
  - Hypoglycaemia [Unknown]
  - Hyperhidrosis [Unknown]
  - Helplessness [Unknown]
  - Tremor [Unknown]

NARRATIVE: CASE EVENT DATE: 20210127
